FAERS Safety Report 9483982 (Version 2)
Quarter: 2013Q3

REPORT INFORMATION
  Report Type: Spontaneous
  Country: US (occurrence: US)
  Receive Date: 20130828
  Receipt Date: 20130828
  Transmission Date: 20140515
  Serious: Yes (Death, Hospitalization, Other)
  Sender: FDA-Public Use
  Company Number: US-AMGEN-KDL342546

PATIENT
  Age: 77 Year
  Sex: Male

DRUGS (11)
  1. PROCRIT [Suspect]
     Indication: ANAEMIA OF MALIGNANT DISEASE
     Dosage: 20000 IU, UNK
     Route: 065
  2. FOLIC ACID [Concomitant]
     Dosage: 2 MG, QD
  3. OLMESARTAN MEDOXOMIL [Concomitant]
     Dosage: 40 MG, QD
  4. FLUTAMIDE [Concomitant]
     Dosage: 125 MG, TID
  5. DOXAZOSIN MESILATE [Concomitant]
     Dosage: UNK UNK, BID
  6. IRON [Concomitant]
     Dosage: 65 MG, QD
  7. ASCORBIC ACID [Concomitant]
     Dosage: 1000 MG, QD
  8. BECOSYM FORTE [Concomitant]
     Dosage: UNK UNK, BID
     Route: 048
  9. CALCIUM [Concomitant]
  10. ERGOCALCIFEROL [Concomitant]
  11. MAGNESIUM [Concomitant]

REACTIONS (15)
  - Cardio-respiratory arrest [Fatal]
  - Cardiac arrest [Fatal]
  - Renal cell carcinoma [Fatal]
  - Metastases to pleura [Fatal]
  - Adenocarcinoma [Unknown]
  - Pleural effusion [Unknown]
  - Metastases to bone [Unknown]
  - Metastases to bone marrow [Unknown]
  - Renal failure acute [Unknown]
  - Hypertensive heart disease [Unknown]
  - Chronic obstructive pulmonary disease [Unknown]
  - Cachexia [Unknown]
  - Malnutrition [Unknown]
  - Hospitalisation [Unknown]
  - Constipation [Unknown]
